FAERS Safety Report 9749690 (Version 1)
Quarter: 2013Q4

REPORT INFORMATION
  Report Type: Spontaneous
  Country: GB (occurrence: GB)
  Receive Date: 20131212
  Receipt Date: 20131212
  Transmission Date: 20140711
  Serious: Yes (Life-Threatening, Hospitalization)
  Sender: FDA-Public Use
  Company Number: GB-PFIZER INC-2013353292

PATIENT
  Age: 72 Year
  Sex: Female

DRUGS (8)
  1. IBUPROFEN [Suspect]
     Indication: OSTEOARTHRITIS
     Dosage: 400 MG, 3X/DAY
     Route: 048
     Dates: end: 20131115
  2. OMEPRAZOLE [Concomitant]
     Dosage: ONE IN THE MORNING
  3. TIOTROPIUM [Concomitant]
     Dosage: ONE IN THE MORNING.
  4. SERETIDE [Concomitant]
  5. FOLIC ACID [Concomitant]
     Dosage: ONE IN THE MORNING.
  6. CITALOPRAM [Concomitant]
     Dosage: ONE IN THE MORNING.
  7. CALCICHEW-D3 [Concomitant]
  8. AMITRIPTYLINE [Concomitant]
     Dosage: ONE AT NIGHT.

REACTIONS (3)
  - Anaemia [Unknown]
  - Dyspnoea exertional [Unknown]
  - Gastrointestinal haemorrhage [Unknown]
